FAERS Safety Report 15289853 (Version 2)
Quarter: 2018Q4

REPORT INFORMATION
  Report Type: Spontaneous
  Country: JP (occurrence: JP)
  Receive Date: 20180817
  Receipt Date: 20180904
  Transmission Date: 20190204
  Serious: Yes (Other)
  Sender: FDA-Public Use
  Company Number: JP-JNJFOC-20180812859

PATIENT
  Age: 83 Year
  Sex: Male
  Weight: 63 kg

DRUGS (18)
  1. ATORVASTATIN CALCIUM. [Concomitant]
     Active Substance: ATORVASTATIN CALCIUM
     Route: 048
  2. MAGMITT [Concomitant]
     Active Substance: MAGNESIUM OXIDE
     Route: 048
  3. BAYASPIRIN [Concomitant]
     Active Substance: ASPIRIN
     Route: 048
  4. ZYTIGA [Suspect]
     Active Substance: ABIRATERONE ACETATE
     Indication: PROSTATE CANCER
     Route: 048
     Dates: start: 20180706, end: 20180720
  5. FRANDOL S [Concomitant]
     Active Substance: ISOSORBIDE DINITRATE
     Route: 062
  6. ETHYL ICOSAPENTATE [Concomitant]
     Active Substance: ICOSAPENT ETHYL
     Route: 048
  7. EQUMET [Concomitant]
     Active Substance: METFORMIN HYDROCHLORIDE\VILDAGLIPTIN
     Route: 048
  8. BICALUTAMIDE. [Suspect]
     Active Substance: BICALUTAMIDE
     Indication: PROSTATE CANCER
     Route: 048
  9. URIEF [Concomitant]
     Active Substance: SILODOSIN
     Route: 048
  10. PREDNISOLONE. [Suspect]
     Active Substance: PREDNISOLONE
     Indication: PROSTATE CANCER
     Route: 048
     Dates: start: 20180706, end: 20180720
  11. LHRH [Suspect]
     Active Substance: GONADORELIN DIACETATE TETRAHYDRATE
     Indication: PROSTATE CANCER
     Route: 065
  12. KETOPROFEN. [Concomitant]
     Active Substance: KETOPROFEN
     Route: 062
  13. LUPRAC [Concomitant]
     Active Substance: TORSEMIDE
     Route: 048
  14. EURAX [Concomitant]
     Active Substance: CROTAMITON
     Route: 062
  15. FEBURIC [Concomitant]
     Active Substance: FEBUXOSTAT
     Route: 048
  16. RANMARK [Concomitant]
     Active Substance: DENOSUMAB
     Route: 058
  17. FAMOTIDINE. [Concomitant]
     Active Substance: FAMOTIDINE
     Route: 048
     Dates: start: 20180706
  18. BISOPROLOL FUMARATE. [Concomitant]
     Active Substance: BISOPROLOL FUMARATE
     Route: 048

REACTIONS (1)
  - Thrombocytopenia [Recovered/Resolved]

NARRATIVE: CASE EVENT DATE: 20180720
